FAERS Safety Report 4975825-4 (Version None)
Quarter: 2006Q2

REPORT INFORMATION
  Report Type: 
  Country: None (occurrence: None)
  Receive Date: 20060411
  Receipt Date: 20060323
  Transmission Date: 20061013
  Serious: Yes (Hospitalization)
  Sender: FDA-Public Use
  Company Number: US200603006078

PATIENT
  Age: 71 Year
  Sex: Male

DRUGS (6)
  1. HUMALOG PEN [Suspect]
     Indication: DIABETES MELLITUS
     Dates: start: 20050101
  2. HUMALOG PEN [Suspect]
  3. LANTUS [Concomitant]
  4. TOPROL-XL [Concomitant]
  5. PLAVIX [Concomitant]
  6. LOTENSIN [Concomitant]

REACTIONS (1)
  - TOE AMPUTATION [None]
